FAERS Safety Report 7313517-7 (Version None)
Quarter: 2011Q1

REPORT INFORMATION
  Report Type: 
  Country: None (occurrence: None)
  Receive Date: 20110225
  Receipt Date: 20100913
  Transmission Date: 20110831
  Serious: No
  Sender: FDA-Public Use
  Company Number: US-MYLANLABS-2010S1017004

PATIENT
  Age: 24 Year
  Sex: Female

DRUGS (1)
  1. METFORMIN HCL [Suspect]
     Indication: DIABETES MELLITUS
     Dates: start: 20100828

REACTIONS (3)
  - BLOOD GLUCOSE ABNORMAL [None]
  - DRUG INEFFECTIVE [None]
  - NIGHT SWEATS [None]
